FAERS Safety Report 9842793 (Version 1)
Quarter: 2013Q4

REPORT INFORMATION
  Report Type: Spontaneous
  Country: US (occurrence: None)
  Receive Date: 20131219
  Receipt Date: 20131219
  Transmission Date: 20140711
  Serious: Yes (Death)
  Sender: FDA-Public Use
  Company Number: 163-20785-13100091

PATIENT
  Age: 60 Year
  Sex: Male

DRUGS (8)
  1. THALOMID (THALIDOMIDE) (100 MILLIGRAM, CAPSULES) [Suspect]
     Indication: PLASMA CELL MYELOMA
     Dosage: 100 MG, 1 IN 1 D, PO
     Route: 048
     Dates: start: 20101009, end: 20130930
  2. AMBIEN (ZOLPIDEM TARTRATE) [Concomitant]
  3. ASA (ACETYLSALICYLIC ACID) [Concomitant]
  4. CYMBALTA (DULOXETINE HYDROCHLORIDE) [Concomitant]
  5. DENOSER (ALL OTHER THERAPEUTIC PRODUCTS) [Concomitant]
  6. DEXAMETHASONE (DEXAMETHASONE) [Concomitant]
  7. FISH OIL (FISH OIL) [Concomitant]
  8. DOCUSATE SODIUM (DOCUSATE SODIUM) [Concomitant]

REACTIONS (1)
  - Death [None]
